FAERS Safety Report 6298485 (Version 2)
Quarter: 2021Q1

REPORT INFORMATION
  Report Type: Spontaneous
  Country: US (occurrence: US)
  Receive Date: 20070427
  Receipt Date: 20210130
  Transmission Date: 20210420
  Serious: Yes (Life-Threatening, Hospitalization, Disabling, Other)
  Sender: FDA-Public Use
  Company Number: US-PURDUE-USA_2007_0027112

PATIENT
  Sex: Male

DRUGS (1)
  1. OXYCONTIN [Suspect]
     Active Substance: OXYCODONE HYDROCHLORIDE
     Indication: PAIN
     Dosage: UNK, SEE TEXT
     Route: 048

REACTIONS (8)
  - Multiple organ dysfunction syndrome [Unknown]
  - Overdose [Unknown]
  - Disability [Unknown]
  - Dyspnoea [Unknown]
  - Drug dependence [Not Recovered/Not Resolved]
  - Coma [Unknown]
  - Myocardial infarction [Unknown]
  - Chronic obstructive pulmonary disease [Unknown]
